FAERS Safety Report 9136561 (Version 1)
Quarter: 2013Q1

REPORT INFORMATION
  Report Type: Spontaneous
  Country: US (occurrence: US)
  Receive Date: 20130304
  Receipt Date: 20130304
  Transmission Date: 20140127
  Serious: No
  Sender: FDA-Public Use
  Company Number: US-ABBOTT-12P-163-0962037-00

PATIENT
  Age: 65 Year
  Sex: Male
  Weight: 84.44 kg

DRUGS (3)
  1. ANDROGEL 1% [Suspect]
     Indication: BLOOD TESTOSTERONE DECREASED
     Dosage: 4 PUMPS A DAY
     Dates: start: 20120228, end: 201204
  2. ANDROGEL 1% [Suspect]
     Dosage: 4 PUMPS A DAY
     Dates: start: 201204, end: 201205
  3. ENTOCORT [Concomitant]
     Indication: COLITIS

REACTIONS (7)
  - Back pain [Recovered/Resolved]
  - Arthralgia [Recovered/Resolved]
  - Joint swelling [Recovered/Resolved]
  - Drug ineffective [Not Recovered/Not Resolved]
  - Back pain [Unknown]
  - Arthralgia [Unknown]
  - Joint swelling [Unknown]
